FAERS Safety Report 14766188 (Version 1)
Quarter: 2018Q2

REPORT INFORMATION
  Report Type: Spontaneous
  Country: US (occurrence: US)
  Receive Date: 20180416
  Receipt Date: 20180416
  Transmission Date: 20180711
  Serious: No
  Sender: FDA-Public Use
  Company Number: US-ASTELLAS-2017US024499

PATIENT
  Sex: Male

DRUGS (2)
  1. PROGRAF [Suspect]
     Active Substance: TACROLIMUS\TACROLIMUS ANHYDROUS
     Indication: TRANSPLANT
     Route: 048
     Dates: start: 201611
  2. ZORTRESS [Suspect]
     Active Substance: EVEROLIMUS
     Indication: PRODUCT USED FOR UNKNOWN INDICATION
     Dosage: 6 DF (0.5 MG/3 MG), TWICE DAILY
     Route: 048
     Dates: start: 201703, end: 201706

REACTIONS (4)
  - Headache [Unknown]
  - Peripheral swelling [Unknown]
  - Protein urine present [Unknown]
  - Oedema peripheral [Unknown]
